FAERS Safety Report 6734673-5 (Version None)
Quarter: 2010Q2

REPORT INFORMATION
  Report Type: 
  Country: None (occurrence: None)
  Receive Date: 20100519
  Receipt Date: 20100519
  Transmission Date: 20101027
  Serious: Yes (Life-Threatening, Hospitalization, Other)
  Sender: FDA-Public Use
  Company Number: None

PATIENT
  Age: 56 Year
  Sex: Female
  Weight: 65.7716 kg

DRUGS (2)
  1. METOPROLOL SUCCINATE [Suspect]
     Indication: CORONARY ARTERY BYPASS
     Dosage: 50MG ONCE DAILY PO
     Route: 048
     Dates: start: 19931217, end: 20100422
  2. METOPROLOL SUCCINATE [Suspect]
     Indication: MYOCARDIAL INFARCTION
     Dosage: 50MG ONCE DAILY PO
     Route: 048
     Dates: start: 19931217, end: 20100422

REACTIONS (5)
  - ACTIVITIES OF DAILY LIVING IMPAIRED [None]
  - BLOOD PRESSURE ABNORMAL [None]
  - CARDIAC FAILURE [None]
  - CEREBROVASCULAR ACCIDENT [None]
  - HEART RATE DECREASED [None]
